FAERS Safety Report 7977832-6 (Version None)
Quarter: 2011Q4

REPORT INFORMATION
  Report Type: 
  Country: None (occurrence: None)
  Receive Date: 20111214
  Receipt Date: 20111206
  Transmission Date: 20120403
  Serious: Yes (Other)
  Sender: FDA-Public Use
  Company Number: DE-AMGEN-UK331587

PATIENT
  Age: 23 Year

DRUGS (13)
  1. PEGFILGRASTIM [Suspect]
     Dosage: 6 MG, UNK
     Route: 058
     Dates: start: 20081220, end: 20090103
  2. DOXORUBICIN HCL [Suspect]
     Dosage: 45 MG, QCYCLE
     Route: 042
     Dates: start: 20081219, end: 20081219
  3. METOCLOPRAMIDE HCL [Concomitant]
     Dosage: UNK UNK, PRN
     Route: 065
  4. GEMCITABINE [Suspect]
     Dosage: 17700 MG, QCYCLE
     Route: 042
     Dates: start: 20081219
  5. PREDNISONE TAB [Suspect]
     Dosage: 50 MG, QCYCLE
     Route: 048
     Dates: start: 20081219, end: 20081221
  6. PREDNISONE TAB [Suspect]
     Dosage: UNK UNK, UNK
     Dates: start: 20090102
  7. PEGFILGRASTIM [Suspect]
     Dosage: 6 MG, UNK
     Route: 058
     Dates: start: 20081220, end: 20090103
  8. GRANISETRON [Concomitant]
     Dosage: 3 MG, UNK
     Route: 065
     Dates: start: 20081219, end: 20090102
  9. VINBLASTINE SULFATE [Suspect]
     Dosage: UNK UNK, UNK
     Dates: start: 20090102
  10. GEMCITABINE [Suspect]
     Dosage: UNK UNK, UNK
     Dates: start: 20090102
  11. PEGFILGRASTIM [Suspect]
     Indication: CHEMOTHERAPY
     Dosage: 6 MG, UNK
     Route: 058
     Dates: start: 20081220, end: 20090103
  12. DOXORUBICIN HCL [Suspect]
     Dosage: UNK UNK, UNK
     Dates: start: 20090102
  13. VINBLASTINE SULFATE [Suspect]
     Dosage: 11 MG, QCYCLE
     Route: 042
     Dates: start: 20081219, end: 20081219

REACTIONS (2)
  - DYSPNOEA [None]
  - SYNCOPE [None]
